FAERS Safety Report 24636295 (Version 1)
Quarter: 2024Q4

REPORT INFORMATION
  Report Type: Report from Study
  Country: US (occurrence: US)
  Receive Date: 20241119
  Receipt Date: 20241119
  Transmission Date: 20250114
  Serious: Yes (Hospitalization)
  Sender: TAIHO ONCOLOGY INC
  Company Number: US-TAIHOP-2024-009660

PATIENT
  Age: 62 Year
  Sex: Male
  Weight: 53.52 kg

DRUGS (6)
  1. INQOVI [Suspect]
     Active Substance: CEDAZURIDINE\DECITABINE
     Indication: Myelodysplastic syndrome
     Dosage: FORM STRENGTH: DECITABINE 35 MG + CEDAZURIDINE 100 MG?CYCLE 4
     Route: 048
  2. LBUTEROL SULFA HFA [Concomitant]
     Indication: Product used for unknown indication
     Dosage: 90 BASE
  3. ALBUTEROL [Concomitant]
     Active Substance: ALBUTEROL
     Indication: Product used for unknown indication
     Dosage: 2.5MG/3ML
  4. LORATADINE-D [Concomitant]
     Indication: Product used for unknown indication
     Dosage: 5-20 MG, 12 HR
  5. TRAZODONE [Concomitant]
     Active Substance: TRAZODONE HYDROCHLORIDE
     Indication: Product used for unknown indication
  6. TRELEGY ELLIPTA [Concomitant]
     Active Substance: FLUTICASONE FUROATE\UMECLIDINIUM BROMIDE\VILANTEROL TRIFENATATE
     Indication: Product used for unknown indication
     Dosage: 100-62.5-25 MCG

REACTIONS (2)
  - Cardiopulmonary failure [Unknown]
  - Headache [Unknown]
